FAERS Safety Report 8207489-0 (Version None)
Quarter: 2012Q1

REPORT INFORMATION
  Report Type: 
  Country: None (occurrence: None)
  Receive Date: 20120227
  Receipt Date: 20111110
  Transmission Date: 20120608
  Serious: No
  Sender: FDA-Public Use
  Company Number: 339304

PATIENT
  Age: 58 Year
  Sex: Female

DRUGS (3)
  1. METFORMIN HCL [Concomitant]
  2. VICTOZA [Suspect]
     Indication: TYPE 2 DIABETES MELLITUS
     Dosage: 0.6 MG, QD, SUBCUTANEOUS
     Route: 058
     Dates: start: 20111028
  3. ACTOS [Concomitant]

REACTIONS (4)
  - DRUG DOSE OMISSION [None]
  - NAUSEA [None]
  - DECREASED APPETITE [None]
  - DIZZINESS [None]
